FAERS Safety Report 19130539 (Version 1)
Quarter: 2021Q2

REPORT INFORMATION
  Report Type: Report from Study
  Country: CA (occurrence: CA)
  Receive Date: 20210414
  Receipt Date: 20210414
  Transmission Date: 20210717
  Serious: Yes (Death)
  Sender: FDA-Public Use
  Company Number: CA-OCTA-ONORM03321CA

PATIENT
  Age: 73 Year
  Sex: Male
  Weight: 87 kg

DRUGS (1)
  1. CUTAQUIG [Suspect]
     Active Substance: HUMAN IMMUNOGLOBULIN G
     Indication: ACUTE MYELOID LEUKAEMIA
     Route: 058

REACTIONS (1)
  - Death [Fatal]

NARRATIVE: CASE EVENT DATE: 20210327
